FAERS Safety Report 8583757-8 (Version None)
Quarter: 2012Q3

REPORT INFORMATION
  Report Type: 
  Country: None (occurrence: None)
  Receive Date: 20120810
  Receipt Date: 20120719
  Transmission Date: 20120928
  Serious: Yes (Hospitalization, Disabling, Other)
  Sender: FDA-Public Use
  Company Number: US-009507513-1111USA01448

PATIENT

DRUGS (7)
  1. FOSAMAX PLUS D [Suspect]
     Indication: OSTEOPOROSIS
     Dosage: 70 MG, QW
     Route: 048
     Dates: start: 20071121, end: 20090617
  2. FOSAMAX [Suspect]
     Dosage: 10 MG, UNK
     Dates: start: 20000213, end: 20000921
  3. FOSAMAX [Suspect]
     Dosage: 70 MG, QW
     Route: 048
     Dates: start: 20010720, end: 20060608
  4. FOSAMAX [Suspect]
     Indication: OSTEOPOROSIS
     Dosage: UNK UNK, QD
     Route: 048
     Dates: start: 19980101, end: 20090501
  5. BONIVA [Concomitant]
     Indication: OSTEOPOROSIS
     Dosage: 150 MG, QM
  6. FORTEO [Concomitant]
     Indication: OSTEOPOROSIS
     Dosage: 20 MICROGRAM, QD
     Route: 058
     Dates: start: 20090501, end: 20110501
  7. FOSAMAX [Suspect]
     Dosage: 70 MG, QW
     Route: 048

REACTIONS (44)
  - VITAMIN D DEFICIENCY [None]
  - EXCORIATION [None]
  - HAEMATOMA [None]
  - OSTEOPENIA [None]
  - THROMBOCYTOPENIA [None]
  - SPINAL FRACTURE [None]
  - OVARIAN MASS [None]
  - LUMBAR SPINAL STENOSIS [None]
  - ANXIETY [None]
  - MUSCULAR WEAKNESS [None]
  - FEMORAL NECK FRACTURE [None]
  - HERPES ZOSTER [None]
  - STAPHYLOCOCCAL INFECTION [None]
  - INTERVERTEBRAL DISC PROTRUSION [None]
  - TOOTH EXTRACTION [None]
  - PAIN [None]
  - WRIST FRACTURE [None]
  - MELAENA [None]
  - TOOTH DISORDER [None]
  - INJURY [None]
  - ANTINUCLEAR ANTIBODY POSITIVE [None]
  - SPONDYLOLYSIS [None]
  - TREATMENT NONCOMPLIANCE [None]
  - OSTEOARTHRITIS [None]
  - BODY HEIGHT DECREASED [None]
  - POLYP COLORECTAL [None]
  - ANAEMIA [None]
  - DRUG INEFFECTIVE [None]
  - GASTROOESOPHAGEAL REFLUX DISEASE [None]
  - GINGIVAL DISORDER [None]
  - AORTIC CALCIFICATION [None]
  - ATRIOVENTRICULAR BLOCK FIRST DEGREE [None]
  - COSTOCHONDRITIS [None]
  - CERVICAL SPINAL STENOSIS [None]
  - DENTAL IMPLANTATION [None]
  - FATIGUE [None]
  - FALL [None]
  - INTERVERTEBRAL DISC DEGENERATION [None]
  - SPONDYLOLISTHESIS [None]
  - ELECTROCARDIOGRAM ABNORMAL [None]
  - SPINAL OSTEOARTHRITIS [None]
  - COLONIC POLYP [None]
  - ADVERSE EVENT [None]
  - GASTRITIS [None]
